FAERS Safety Report 12968562 (Version 3)
Quarter: 2017Q1

REPORT INFORMATION
  Report Type: Spontaneous
  Country: JP (occurrence: JP)
  Receive Date: 20161123
  Receipt Date: 20170130
  Transmission Date: 20170428
  Serious: Yes (Death, Hospitalization)
  Sender: FDA-Public Use
  Company Number: JP-BAYER-2016-057040

PATIENT
  Age: 75 Year
  Sex: Male
  Weight: 55.9 kg

DRUGS (3)
  1. LASIX [Suspect]
     Active Substance: FUROSEMIDE
     Indication: COLON CANCER
     Dosage: DAILY DOSE 40 MG
     Route: 048
     Dates: start: 20160125, end: 20160218
  2. POLYFUL [Suspect]
     Active Substance: CALCIUM POLYCARBOPHIL
     Indication: COLON CANCER
     Dosage: DAILY DOSE 500 MG
     Route: 048
     Dates: start: 20160119, end: 20160218
  3. STIVARGA [Suspect]
     Active Substance: REGORAFENIB
     Indication: COLON CANCER
     Dosage: 160 MG, QD
     Route: 048
     Dates: start: 20160205, end: 20160218

REACTIONS (4)
  - Decreased appetite [Unknown]
  - Platelet count decreased [Recovered/Resolved]
  - Colon cancer [Fatal]
  - Malaise [Unknown]

NARRATIVE: CASE EVENT DATE: 20160218
